FAERS Safety Report 18075704 (Version 1)
Quarter: 2020Q3

REPORT INFORMATION
  Report Type: Spontaneous
  Country: US (occurrence: US)
  Receive Date: 20200727
  Receipt Date: 20200727
  Transmission Date: 20201103
  Serious: No
  Sender: FDA-Public Use
  Company Number: US-ABBVIE-20K-163-3289293-00

PATIENT
  Sex: Female

DRUGS (1)
  1. SYNTHROID [Suspect]
     Active Substance: LEVOTHYROXINE SODIUM
     Indication: HYPOTHYROIDISM
     Route: 042

REACTIONS (8)
  - Weight abnormal [Unknown]
  - Dry skin [Unknown]
  - Affective disorder [Unknown]
  - Cerebral disorder [Unknown]
  - Blood thyroid stimulating hormone increased [Unknown]
  - Hair disorder [Unknown]
  - Cardiac disorder [Unknown]
  - Drug ineffective [Unknown]
